FAERS Safety Report 9365630 (Version 1)
Quarter: 2013Q2

REPORT INFORMATION
  Report Type: Spontaneous
  Country: GB (occurrence: GB)
  Receive Date: 20130625
  Receipt Date: 20130625
  Transmission Date: 20140414
  Serious: Yes (Other)
  Sender: FDA-Public Use
  Company Number: GB-ROCHE-1239918

PATIENT
  Age: 64 Year
  Sex: Female

DRUGS (4)
  1. XELODA [Suspect]
     Indication: METASTASES TO BONE
     Route: 048
     Dates: start: 20120328, end: 20120718
  2. XELODA [Suspect]
     Indication: BREAST CANCER
     Route: 048
  3. SELENIUM [Concomitant]
     Route: 065
  4. VITAMIN B COMPOUND [Concomitant]
     Route: 065

REACTIONS (4)
  - Sensory disturbance [Recovered/Resolved]
  - Feeling drunk [Recovered/Resolved]
  - Feeling abnormal [Recovered/Resolved]
  - Oropharyngeal pain [Recovered/Resolved]
